FAERS Safety Report 23682022 (Version 4)
Quarter: 2024Q2

REPORT INFORMATION
  Report Type: Spontaneous
  Country: US (occurrence: US)
  Receive Date: 20240328
  Receipt Date: 20240607
  Transmission Date: 20240716
  Serious: Yes (Other)
  Sender: FDA-Public Use
  Company Number: US-GSKCCFUS-Case-01964346_AE-109210

PATIENT

DRUGS (1)
  1. ANORO ELLIPTA [Suspect]
     Active Substance: UMECLIDINIUM BROMIDE\VILANTEROL TRIFENATATE
     Indication: Asthma
     Dosage: UNK, 62.5/25 MCG
     Route: 055

REACTIONS (7)
  - Foreign body in throat [Unknown]
  - Wrong technique in device usage process [Unknown]
  - Feeling jittery [Unknown]
  - Incorrect dose administered [Unknown]
  - Product taste abnormal [Unknown]
  - Product dose omission in error [Unknown]
  - Product complaint [Unknown]
